FAERS Safety Report 7634919-5 (Version None)
Quarter: 2011Q3

REPORT INFORMATION
  Report Type: 
  Country: None (occurrence: None)
  Receive Date: 20110726
  Receipt Date: 20110713
  Transmission Date: 20111222
  Serious: Yes (Hospitalization, Other)
  Sender: FDA-Public Use
  Company Number: US-BAYER-2011-002829

PATIENT
  Age: 23 Year
  Sex: Female
  Weight: 67 kg

DRUGS (3)
  1. SYNTHROID [Concomitant]
  2. CLARITIN [Concomitant]
  3. YAZ [Suspect]
     Dosage: UNK
     Dates: start: 20070901, end: 20090101

REACTIONS (2)
  - PAIN [None]
  - CHOLECYSTITIS CHRONIC [None]
